FAERS Safety Report 14226262 (Version 1)
Quarter: 2017Q4

REPORT INFORMATION
  Report Type: Spontaneous
  Country: US (occurrence: US)
  Receive Date: 20171127
  Receipt Date: 20171127
  Transmission Date: 20180321
  Serious: No
  Sender: FDA-Public Use
  Company Number: US-TEVA-795121USA

PATIENT
  Sex: Female

DRUGS (1)
  1. DIAZEPAM. [Suspect]
     Active Substance: DIAZEPAM
     Indication: SLEEP DISORDER
     Dosage: 1.5 DOSAGE FORMS DAILY;
     Dates: start: 2017

REACTIONS (4)
  - Adverse drug reaction [Unknown]
  - Insomnia [Unknown]
  - Product quality issue [Unknown]
  - Drug ineffective [Unknown]
